FAERS Safety Report 5311899-9 (Version None)
Quarter: 2007Q2

REPORT INFORMATION
  Report Type: 
  Country: None (occurrence: None)
  Receive Date: 20070426
  Receipt Date: 20070426
  Transmission Date: 20071010
  Serious: No
  Sender: FDA-Public Use
  Company Number: None

PATIENT
  Age: 52 Year
  Sex: Female
  Weight: 86.1834 kg

DRUGS (7)
  1. CYMBALTA [Suspect]
     Indication: DEPRESSION
     Dosage: 60MG DAILY PO
     Route: 048
     Dates: start: 20050305, end: 20050508
  2. DIOVAN [Concomitant]
  3. MEVACOR [Concomitant]
  4. PRILOSEC [Concomitant]
  5. ACTONEL [Concomitant]
  6. CALCIUM CHLORIDE [Concomitant]
  7. FISH OIL [Concomitant]

REACTIONS (1)
  - SUICIDAL IDEATION [None]
